FAERS Safety Report 7795044-6 (Version None)
Quarter: 2011Q4

REPORT INFORMATION
  Report Type: 
  Country: None (occurrence: None)
  Receive Date: 20111004
  Receipt Date: 20110921
  Transmission Date: 20120403
  Serious: Yes (Hospitalization)
  Sender: FDA-Public Use
  Company Number: AU-JNJFOC-20111000266

PATIENT
  Sex: Female

DRUGS (5)
  1. TRAMADOL HCL [Suspect]
     Indication: PRODUCT USED FOR UNKNOWN INDICATION
     Dosage: AS NEEDED
     Route: 048
     Dates: start: 20110620
  2. PREGABALIN [Concomitant]
     Dosage: AS NEEDED
     Route: 065
  3. VENLAFAXINE HYDROCHLORIDE [Concomitant]
     Dosage: AS NEEDED
     Route: 065
  4. ZOPICLONE [Concomitant]
     Dosage: AS NEEDED
     Route: 065
  5. ORPHENADRINE CITRATE [Interacting]
     Indication: MUSCLE SPASMS
     Dosage: AS NEEDED
     Route: 065
     Dates: start: 20110620

REACTIONS (10)
  - APHASIA [None]
  - DYSARTHRIA [None]
  - DYSPNOEA [None]
  - DRUG INTERACTION [None]
  - ANTICHOLINERGIC SYNDROME [None]
  - MENTAL IMPAIRMENT [None]
  - FOAMING AT MOUTH [None]
  - MEMORY IMPAIRMENT [None]
  - SEROTONIN SYNDROME [None]
  - HEADACHE [None]
